FAERS Safety Report 12975079 (Version 3)
Quarter: 2017Q2

REPORT INFORMATION
  Report Type: Report from Study
  Country: US (occurrence: US)
  Receive Date: 20161125
  Receipt Date: 20170427
  Transmission Date: 20170830
  Serious: Yes (Hospitalization)
  Sender: FDA-Public Use
  Company Number: US-BIOGEN-2016BI00321331

PATIENT
  Sex: Female

DRUGS (1)
  1. TYSABRI [Suspect]
     Active Substance: NATALIZUMAB
     Indication: MULTIPLE SCLEROSIS
     Route: 042
     Dates: start: 20120220

REACTIONS (3)
  - Sepsis [Unknown]
  - Urinary tract infection [Recovered/Resolved]
  - Neurogenic bladder [Recovered/Resolved]

NARRATIVE: CASE EVENT DATE: 2016
